FAERS Safety Report 14983659 (Version 1)
Quarter: 2018Q2

REPORT INFORMATION
  Report Type: Report from Study
  Country: None (occurrence: ES)
  Receive Date: 20180607
  Receipt Date: 20180607
  Transmission Date: 20180711
  Serious: Yes (Hospitalization)
  Sender: FDA-Public Use
  Company Number: ES-ABBVIE-18K-144-2376191-00

PATIENT
  Age: 53 Year
  Sex: Male
  Weight: 77 kg

DRUGS (5)
  1. DUODOPA [Suspect]
     Active Substance: CARBIDOPA\LEVODOPA
     Dosage: INCREASE DUODOPA CONTINUOUS DOSE FROM 3.9 TO 4.1 ML/H
     Route: 050
     Dates: start: 2018
  2. QUETIAPINE. [Concomitant]
     Active Substance: QUETIAPINE
     Indication: PRODUCT USED FOR UNKNOWN INDICATION
     Dates: end: 20180601
  3. DUODOPA [Suspect]
     Active Substance: CARBIDOPA\LEVODOPA
     Indication: PARKINSON^S DISEASE
     Dosage: CD: 3.9 ML/HR
     Route: 050
     Dates: start: 20180308, end: 2018
  4. QUETIAPINE. [Concomitant]
     Active Substance: QUETIAPINE
     Dates: start: 20180602
  5. DUODOPA [Suspect]
     Active Substance: CARBIDOPA\LEVODOPA
     Dosage: DECREASE OF 0.2 ML OF DUODOPA CONTINUOUS DOSE PER WEEK
     Route: 050
     Dates: start: 2018

REACTIONS (7)
  - Hallucination [Not Recovered/Not Resolved]
  - Aggression [Recovering/Resolving]
  - Unresponsive to stimuli [Unknown]
  - Urinary tract infection [Recovering/Resolving]
  - Freezing phenomenon [Recovering/Resolving]
  - Muscle rigidity [Recovering/Resolving]
  - Daydreaming [Unknown]

NARRATIVE: CASE EVENT DATE: 201804
